FAERS Safety Report 17661070 (Version 1)
Quarter: 2020Q2

REPORT INFORMATION
  Report Type: Spontaneous
  Country: DE (occurrence: DE)
  Receive Date: 20200413
  Receipt Date: 20200413
  Transmission Date: 20200713
  Serious: Yes (Hospitalization)
  Sender: FDA-Public Use
  Company Number: DE-TEVA-2020-DE-1222924

PATIENT
  Age: 77 Year
  Sex: Male

DRUGS (6)
  1. PACLITAXEL. [Concomitant]
     Active Substance: PACLITAXEL
     Dosage: LAST ON 14012020
  2. AMPHOTERICIN B. [Concomitant]
     Active Substance: AMPHOTERICIN B
     Dosage: 4 DOSAGE FORMS DAILY;
  3. OXYCODON [Suspect]
     Active Substance: OXYCODONE
     Dosage: 4 DOSAGE FORMS DAILY; 10 MG, 2-0-2-0
  4. ASS 100 [Suspect]
     Active Substance: ASPIRIN
     Dosage: 100 MILLIGRAM DAILY;
  5. METOCLOPRAMID [Concomitant]
     Active Substance: METOCLOPRAMIDE
  6. COLECALCIFEROL (VITAMIN D)/RETINOL (VITAMIN A) [Concomitant]

REACTIONS (6)
  - Weight decreased [Unknown]
  - Decreased appetite [Unknown]
  - Nausea [Unknown]
  - Vomiting [Unknown]
  - Product prescribing error [Unknown]
  - Dyspnoea [Unknown]
